FAERS Safety Report 5255455-X (Version None)
Quarter: 2007Q1

REPORT INFORMATION
  Report Type: 
  Country: None (occurrence: None)
  Receive Date: 20070305
  Receipt Date: 20070301
  Transmission Date: 20070707
  Serious: Yes (Other)
  Sender: FDA-Public Use
  Company Number: 2007UW03932

PATIENT
  Sex: Female

DRUGS (1)
  1. ARIMIDEX [Suspect]

REACTIONS (5)
  - ARTHROPATHY [None]
  - JOINT SPRAIN [None]
  - KNEE OPERATION [None]
  - MUSCULAR WEAKNESS [None]
  - SURGERY [None]
